FAERS Safety Report 21773183 (Version 3)
Quarter: 2022Q4

REPORT INFORMATION
  Report Type: Spontaneous
  Country: RU (occurrence: RU)
  Receive Date: 20221223
  Receipt Date: 20221227
  Transmission Date: 20230112
  Serious: Yes (Hospitalization, Other)
  Sender: FDA-Public Use
  Company Number: RU-AstraZeneca-2022A382934

PATIENT
  Age: 72 Year
  Sex: Female

DRUGS (11)
  1. SPIRONOLACTONE [Interacting]
     Active Substance: SPIRONOLACTONE
     Dosage: 25 MG, 1X/DAY
     Dates: start: 202102, end: 202103
  2. ASPIRIN [Interacting]
     Active Substance: ASPIRIN
     Dosage: 100 MG, 1X/DAY
     Dates: start: 202102
  3. ENALAPRIL [Interacting]
     Active Substance: ENALAPRIL
     Dosage: 5 MG, 2X/DAY
     Dates: start: 202102, end: 202103
  4. ROSUVASTATIN [Interacting]
     Active Substance: ROSUVASTATIN
     Dosage: 40 MG, 1X/DAY
     Dates: start: 202102, end: 202103
  5. TICAGRELOR [Interacting]
     Active Substance: TICAGRELOR
     Dosage: 90 MG, 2X/DAY
     Dates: start: 202102
  6. METOPROLOL SUCCINATE [Concomitant]
     Active Substance: METOPROLOL SUCCINATE
     Dosage: 50 MG, 1X/DAY
     Dates: start: 202102
  7. AZITHROMYCIN [Concomitant]
     Active Substance: AZITHROMYCIN
     Indication: COVID-19 pneumonia
     Dosage: 250 MG, 1X/DAY
     Dates: start: 202103
  8. ACETYLCYSTEINE [Concomitant]
     Active Substance: ACETYLCYSTEINE
     Indication: Pneumonia bacterial
     Dosage: 200 MG, 1X/DAY
     Dates: start: 202103
  9. ACETYLCYSTEINE [Concomitant]
     Active Substance: ACETYLCYSTEINE
     Indication: COVID-19 pneumonia
  10. OMEPRAZOLE [Concomitant]
     Active Substance: OMEPRAZOLE
     Dosage: 20 MG, 1X/DAY
     Dates: start: 202102
  11. INGAVIRIN [Concomitant]
     Active Substance: INGAVIRIN
     Indication: Pneumonia bacterial
     Dosage: UNK
     Dates: start: 202107

REACTIONS (3)
  - Rhabdomyolysis [Recovered/Resolved]
  - Acute kidney injury [Recovered/Resolved]
  - Drug interaction [Recovered/Resolved]

NARRATIVE: CASE EVENT DATE: 20210101
